FAERS Safety Report 25909500 (Version 1)
Quarter: 2025Q4

REPORT INFORMATION
  Report Type: Spontaneous
  Country: US (occurrence: US)
  Receive Date: 20251011
  Receipt Date: 20251011
  Transmission Date: 20260117
  Serious: Yes (Other)
  Sender: ALEXION PHARMACEUTICALS
  Company Number: US-AstraZeneca-CH-00968115A

PATIENT
  Sex: Female

DRUGS (1)
  1. BRILINTA [Suspect]
     Active Substance: TICAGRELOR
     Indication: Cerebrovascular accident
     Route: 065

REACTIONS (4)
  - Cerebrovascular accident [Unknown]
  - Dyspnoea [Recovering/Resolving]
  - Hypersensitivity [Not Recovered/Not Resolved]
  - Medication error [Unknown]
